FAERS Safety Report 21075118 (Version 1)
Quarter: 2022Q3

REPORT INFORMATION
  Report Type: Spontaneous
  Country: US (occurrence: None)
  Receive Date: 20220712
  Receipt Date: 20220712
  Transmission Date: 20221026
  Serious: Yes (Disabling)
  Sender: FDA-Public Use
  Company Number: None

PATIENT
  Age: 61 Year
  Sex: Female
  Weight: 60.3 kg

DRUGS (3)
  1. PAXLOVID [Suspect]
     Active Substance: NIRMATRELVIR\RITONAVIR
     Indication: SARS-CoV-2 test positive
     Dosage: FREQUENCY : TWICE A DAY;?
     Route: 048
     Dates: start: 20220623, end: 20220701
  2. IBRUTINIB [Concomitant]
     Active Substance: IBRUTINIB
  3. BREO ELLIPTA [Concomitant]
     Active Substance: FLUTICASONE FUROATE\VILANTEROL TRIFENATATE

REACTIONS (22)
  - Stomatitis [None]
  - Throat tightness [None]
  - Swollen tongue [None]
  - Dry mouth [None]
  - Dysgeusia [None]
  - Condition aggravated [None]
  - Tongue pruritus [None]
  - Tongue discomfort [None]
  - Blood glucose decreased [None]
  - Anxiety [None]
  - Pyrexia [None]
  - Throat irritation [None]
  - Cough [None]
  - Sinus congestion [None]
  - Pulmonary congestion [None]
  - Pain [None]
  - Fatigue [None]
  - Muscular weakness [None]
  - Upper respiratory tract infection [None]
  - SARS-CoV-2 test positive [None]
  - Panic attack [None]
  - Sneezing [None]

NARRATIVE: CASE EVENT DATE: 20220627
